FAERS Safety Report 13738450 (Version 1)
Quarter: 2017Q3

REPORT INFORMATION
  Report Type: Spontaneous
  Country: US (occurrence: US)
  Receive Date: 20170710
  Receipt Date: 20170710
  Transmission Date: 20171127
  Serious: Yes (Other)
  Sender: FDA-Public Use
  Company Number: US-SAOL THERAPEUTICS-2016SAO01208

PATIENT
  Age: 58 Year
  Sex: Male

DRUGS (5)
  1. BACLOFEN. [Suspect]
     Active Substance: BACLOFEN
     Indication: PAIN
     Route: 037
  2. FENTANYL. [Suspect]
     Active Substance: FENTANYL
     Dosage: 202 ?G, \DAY
     Route: 037
  3. CLONIDINE. [Suspect]
     Active Substance: CLONIDINE
     Route: 037
  4. BUPIVACAINE. [Suspect]
     Active Substance: BUPIVACAINE
     Route: 037
  5. MORPHINE [Suspect]
     Active Substance: MORPHINE
     Route: 037

REACTIONS (6)
  - Back pain [Unknown]
  - Off label use [Unknown]
  - Vomiting [Unknown]
  - Hypokinesia [Unknown]
  - Scoliosis [Unknown]
  - Renal pain [Unknown]

NARRATIVE: CASE EVENT DATE: 201411
